FAERS Safety Report 6212597-X (Version None)
Quarter: 2009Q2

REPORT INFORMATION
  Report Type: 
  Country: None (occurrence: None)
  Receive Date: 20090529
  Receipt Date: 20090518
  Transmission Date: 20091009
  Serious: Yes (Life-Threatening)
  Sender: FDA-Public Use
  Company Number: 1000006445

PATIENT
  Age: 59 Year
  Sex: Female

DRUGS (4)
  1. ESCITALOPRAM [Suspect]
     Indication: DEPRESSION
     Dosage: 10 MG (10 MG, 1 IN 1 D), ORAL
     Route: 048
     Dates: start: 20090101
  2. VALSARTAN [Suspect]
     Indication: CEREBRAL HAEMORRHAGE
     Dosage: 80 MG (80 MG, 1 IN 1 D), ORAL
     Route: 048
     Dates: start: 20070101
  3. LEVOTHYROXINE (0.05 MILLIGRAM, TABLETS) [Concomitant]
  4. PHENOBARBITAL TAB [Concomitant]

REACTIONS (1)
  - CEREBRAL HAEMORRHAGE [None]
